FAERS Safety Report 9360383 (Version 1)
Quarter: 2013Q2

REPORT INFORMATION
  Report Type: Spontaneous
  Country: US (occurrence: US)
  Receive Date: 20130621
  Receipt Date: 20130621
  Transmission Date: 20140414
  Serious: No
  Sender: FDA-Public Use
  Company Number: US-BAYER-2013-070514

PATIENT
  Age: 54 Year
  Sex: Female

DRUGS (9)
  1. BETASERON [Suspect]
     Dosage: 0.25 MG, QOD
     Route: 058
  2. BETASERON [Suspect]
     Dosage: 0.5 MG, QOD
     Route: 058
  3. SYNTHROID [Concomitant]
     Dosage: 200 UNK, UNK
  4. HYDROCHLOROTHIAZID [Concomitant]
     Dosage: 25 MG, UNK
  5. OXYBUTYNIN [Concomitant]
     Dosage: 5 MG, UNK
  6. ZOLPIDEM [Concomitant]
     Dosage: 5 MG, UNK
  7. GLUCOSAMINE W/CHONDROITIN SULFATE [Concomitant]
  8. CALCIUM +VIT D [Concomitant]
  9. VITAMIN D [Concomitant]
     Dosage: 400 U, UNK

REACTIONS (2)
  - Influenza like illness [Recovered/Resolved]
  - Inappropriate schedule of drug administration [Recovered/Resolved]
